FAERS Safety Report 10641848 (Version 2)
Quarter: 2015Q1

REPORT INFORMATION
  Report Type: Spontaneous
  Country: US (occurrence: US)
  Receive Date: 20141209
  Receipt Date: 20150209
  Transmission Date: 20150720
  Serious: Yes (Hospitalization, Other)
  Sender: FDA-Public Use
  Company Number: US-TEVA-526829USA

PATIENT
  Age: 64 Year
  Sex: Female
  Weight: 111.23 kg

DRUGS (3)
  1. WARFARIN [Suspect]
     Active Substance: WARFARIN
     Route: 065
  2. COUMADIN [Suspect]
     Active Substance: WARFARIN SODIUM
     Route: 065
  3. REVATIO [Suspect]
     Active Substance: SILDENAFIL CITRATE
     Indication: PULMONARY ARTERIAL HYPERTENSION
     Dosage: 120 MILLIGRAM DAILY; 20MG, TWO TABLETS THREE TIMES DAILY
     Dates: start: 2010

REACTIONS (10)
  - Cystitis [Unknown]
  - Decreased appetite [Unknown]
  - Epistaxis [Unknown]
  - Bleeding time abnormal [Recovered/Resolved]
  - Burnout syndrome [Unknown]
  - Fatigue [Unknown]
  - Insomnia [Unknown]
  - Oxygen supplementation [Unknown]
  - Drug interaction [Recovered/Resolved]
  - Dyspnoea [Unknown]
